FAERS Safety Report 7792292 (Version 3)
Quarter: 2013Q4

REPORT INFORMATION
  Report Type: Spontaneous
  Country: DE (occurrence: DE)
  Receive Date: 20110131
  Receipt Date: 20131021
  Transmission Date: 20140711
  Serious: Yes (Hospitalization, Other)
  Sender: FDA-Public Use
  Company Number: DE-JNJFOC-20110106221

PATIENT
  Age: 39 Year
  Sex: Male
  Weight: 63 kg

DRUGS (7)
  1. CONCERTA [Suspect]
     Indication: PERSONALITY DISORDER
     Route: 048
  2. METHYLPHENIDATE [Suspect]
     Indication: PRODUCT USED FOR UNKNOWN INDICATION
     Route: 048
     Dates: start: 20110124, end: 20110124
  3. FLUOXETIN [Suspect]
     Indication: PERSONALITY DISORDER
     Route: 048
     Dates: start: 20110124, end: 20110124
  4. FLUOXETIN [Suspect]
     Indication: PERSONALITY DISORDER
     Route: 048
     Dates: start: 20110124, end: 20110124
  5. DOMINAL [Suspect]
     Indication: PRODUCT USED FOR UNKNOWN INDICATION
     Route: 048
     Dates: start: 20110124, end: 20110124
  6. TETRAZEPAM [Suspect]
     Indication: PRODUCT USED FOR UNKNOWN INDICATION
     Route: 048
     Dates: start: 20110124, end: 20110124
  7. ALCOHOL [Suspect]
     Indication: PRODUCT USED FOR UNKNOWN INDICATION
     Route: 048
     Dates: start: 20110124, end: 20110124

REACTIONS (2)
  - Suicide attempt [Recovered/Resolved]
  - Intentional overdose [Unknown]
